FAERS Safety Report 6699916-5 (Version None)
Quarter: 2010Q2

REPORT INFORMATION
  Report Type: 
  Country: None (occurrence: None)
  Receive Date: 20100428
  Receipt Date: 20100414
  Transmission Date: 20101027
  Serious: Yes (Life-Threatening, Hospitalization)
  Sender: FDA-Public Use
  Company Number: GB-RANBAXY-2010RR-33279

PATIENT
  Age: 61 Year
  Sex: Female

DRUGS (18)
  1. RAMIPRIL [Suspect]
     Dosage: 10 MG, QD
     Route: 048
     Dates: end: 20100323
  2. TRIMETHOPRIM [Suspect]
     Indication: URINARY TRACT INFECTION
     Dosage: 200 MG, BID
     Route: 048
     Dates: start: 20100317, end: 20100320
  3. AMLODIPINE [Concomitant]
     Dosage: 5 MG, QD
     Route: 048
  4. ASPIRIN [Concomitant]
     Dosage: 75 MG, QD
     Route: 048
  5. ATORVASTATIN [Concomitant]
     Dosage: 40 MG, QD
  6. CITALOPRAM [Concomitant]
     Indication: DEPRESSION
     Dosage: 10 MG, QD
     Route: 048
  7. CLONAZEPAM [Concomitant]
     Dosage: 500 UG, QD
     Route: 048
  8. ACETAMINOPHEN AND CODEINE PHOSPHATE [Concomitant]
     Dosage: UNK
     Route: 048
  9. CREON [Concomitant]
     Dosage: 10000 IU, PRN
  10. DICLOFENAC [Concomitant]
     Dosage: 50 MG, TID
     Route: 048
     Dates: end: 20100323
  11. DIHYDROCODEINE BITARTRATE INJ [Concomitant]
     Dosage: 60 MG, PRN
     Route: 048
  12. DOXAZOSIN [Concomitant]
     Dosage: 4 MG, QD
     Route: 048
  13. FERROUS FUMARATE [Concomitant]
     Indication: ANAEMIA
     Dosage: 250 MG, TID
     Route: 048
  14. FLUTICASONE PROPIONATE [Concomitant]
     Dosage: 800 UG, BID
     Route: 055
  15. METFORMIN [Concomitant]
     Dosage: 500 MG, TID
     Route: 048
  16. MIXTARD HUMAN 70/30 [Concomitant]
     Indication: DIABETES MELLITUS
     Dosage: 60 IU, BID
     Route: 058
  17. OMEPRAZOLE [Concomitant]
     Indication: PROPHYLAXIS AGAINST GASTROINTESTINAL ULCER
     Dosage: 10 MG, QD
     Route: 048
  18. VENTOLIN [Concomitant]
     Dosage: UNK
     Route: 055

REACTIONS (2)
  - DRUG INTERACTION [None]
  - HYPERKALAEMIA [None]
